FAERS Safety Report 8322595-8 (Version None)
Quarter: 2012Q2

REPORT INFORMATION
  Report Type: 
  Country: None (occurrence: None)
  Receive Date: 20120426
  Receipt Date: 20120405
  Transmission Date: 20120825
  Serious: Yes (Other)
  Sender: FDA-Public Use
  Company Number: 001189376A

PATIENT
  Sex: Female

DRUGS (2)
  1. ZYRTEC [Concomitant]
  2. PROACTIV 90 DAY KIT [Suspect]
     Indication: ACNE
     Dosage: ONCE DAILY DERMAL
     Dates: start: 20120307

REACTIONS (7)
  - PRURITUS [None]
  - LOCAL SWELLING [None]
  - PHARYNGEAL OEDEMA [None]
  - DYSPNOEA [None]
  - ERYTHEMA [None]
  - THROAT TIGHTNESS [None]
  - SWELLING FACE [None]
